FAERS Safety Report 25974150 (Version 1)
Quarter: 2025Q4

REPORT INFORMATION
  Report Type: Spontaneous
  Country: AU (occurrence: AU)
  Receive Date: 20251029
  Receipt Date: 20251029
  Transmission Date: 20260118
  Serious: Yes (Other)
  Sender: ACCORD
  Company Number: AU-Accord-509815

PATIENT

DRUGS (1)
  1. MYCOPHENOLATE MOFETIL [Suspect]
     Active Substance: MYCOPHENOLATE MOFETIL
     Indication: Central nervous system vasculitis

REACTIONS (3)
  - Cerebral infarction [Unknown]
  - Product prescribing issue [Unknown]
  - Drug ineffective for unapproved indication [Unknown]
